FAERS Safety Report 9748611 (Version 1)
Quarter: 2013Q4

REPORT INFORMATION
  Report Type: Spontaneous
  Country: US (occurrence: US)
  Receive Date: 20131212
  Receipt Date: 20131212
  Transmission Date: 20140711
  Serious: Yes (Hospitalization)
  Sender: FDA-Public Use
  Company Number: US-SA-2013SA128845

PATIENT
  Age: 89 Year
  Sex: Female

DRUGS (1)
  1. LANTUS [Suspect]
     Dosage: DOSE:16 UNIT(S)
     Route: 058

REACTIONS (2)
  - Adverse event [Unknown]
  - Visual acuity reduced [Unknown]
